FAERS Safety Report 15792412 (Version 2)
Quarter: 2019Q1

REPORT INFORMATION
  Report Type: Report from Study
  Country: None (occurrence: US)
  Receive Date: 20190107
  Receipt Date: 20190307
  Transmission Date: 20190417
  Serious: Yes (Other)
  Sender: FDA-Public Use
  Company Number: US-ABBVIE-19K-163-2611227-00

PATIENT
  Age: 42 Year
  Sex: Male
  Weight: 77.18 kg

DRUGS (3)
  1. HUMIRA [Suspect]
     Active Substance: ADALIMUMAB
     Indication: PSORIATIC ARTHROPATHY
     Route: 058
  2. HUMIRA [Suspect]
     Active Substance: ADALIMUMAB
     Dosage: CITRATE FREE
     Route: 058
  3. CHANTIX [Concomitant]
     Active Substance: VARENICLINE TARTRATE
     Indication: SMOKING CESSATION THERAPY

REACTIONS (8)
  - Injection site pain [Recovered/Resolved]
  - Alopecia [Unknown]
  - Pain in extremity [Unknown]
  - Increased tendency to bruise [Not Recovered/Not Resolved]
  - Peripheral swelling [Unknown]
  - Rash papular [Unknown]
  - Dermatitis allergic [Unknown]
  - Pulmonary oedema [Not Recovered/Not Resolved]
